FAERS Safety Report 15679664 (Version 1)
Quarter: 2018Q4

REPORT INFORMATION
  Report Type: Spontaneous
  Country: US (occurrence: US)
  Receive Date: 20181203
  Receipt Date: 20181203
  Transmission Date: 20190205
  Serious: Yes (Other)
  Sender: FDA-Public Use
  Company Number: US-BIOGEN-2018BI00665823

PATIENT
  Sex: Female

DRUGS (1)
  1. TECFIDERA [Suspect]
     Active Substance: DIMETHYL FUMARATE
     Indication: MULTIPLE SCLEROSIS
     Route: 065
     Dates: start: 20180205

REACTIONS (5)
  - Vision blurred [Unknown]
  - Multiple sclerosis [Unknown]
  - Ophthalmological examination abnormal [Unknown]
  - Deafness [Unknown]
  - Confusional state [Unknown]
